FAERS Safety Report 13674301 (Version 3)
Quarter: 2017Q3

REPORT INFORMATION
  Report Type: Report from Study
  Country: US (occurrence: US)
  Receive Date: 20170621
  Receipt Date: 20170913
  Transmission Date: 20171127
  Serious: Yes (Hospitalization)
  Sender: FDA-Public Use
  Company Number: PHEH2017US018782

PATIENT
  Age: 57 Year
  Sex: Female

DRUGS (1)
  1. ENTRESTO [Suspect]
     Active Substance: SACUBITRIL\VALSARTAN
     Indication: HEART RATE DECREASED
     Dosage: 1 DF (97/103 MG), BID
     Route: 048
     Dates: start: 20160908

REACTIONS (5)
  - Diverticulitis [Recovered/Resolved]
  - Abdominal pain lower [Recovering/Resolving]
  - Product use in unapproved indication [Unknown]
  - Hypotension [Not Recovered/Not Resolved]
  - Gastrointestinal haemorrhage [Not Recovered/Not Resolved]

NARRATIVE: CASE EVENT DATE: 201609
